FAERS Safety Report 7341952-X (Version None)
Quarter: 2011Q1

REPORT INFORMATION
  Report Type: 
  Country: None (occurrence: None)
  Receive Date: 20110309
  Receipt Date: 20110307
  Transmission Date: 20110831
  Serious: Yes (Death, Hospitalization, Other)
  Sender: FDA-Public Use
  Company Number: JP-PFIZER INC-2011048945

PATIENT
  Age: 97 Year
  Sex: Female

DRUGS (7)
  1. LIPITOR [Concomitant]
     Dosage: UNK
     Route: 048
  2. LYRICA [Suspect]
     Dosage: 25 MG, 1X/DAY
     Route: 048
     Dates: start: 20101201, end: 20110201
  3. LOSARTAN POTASSIUM AND HYDROCHLOROTHIAZIDE [Concomitant]
     Route: 048
  4. LYRICA [Suspect]
     Dosage: 75 MG, 2X/DAY
     Route: 048
     Dates: start: 20110201
  5. MAGMITT [Concomitant]
     Route: 048
  6. NORVASC [Concomitant]
     Dosage: UNK
     Route: 048
  7. POLYFUL [Concomitant]
     Route: 048

REACTIONS (1)
  - PNEUMONIA [None]
